FAERS Safety Report 4548410-6 (Version None)
Quarter: 2004Q4

REPORT INFORMATION
  Report Type: 
  Country: None (occurrence: None)
  Receive Date: 20041220
  Receipt Date: 20041110
  Transmission Date: 20050328
  Serious: Yes (Hospitalization)
  Sender: FDA-Public Use
  Company Number: US_021088895

PATIENT
  Age: 47 Year
  Sex: Female
  Weight: 80 kg

DRUGS (6)
  1. INSULIN-INSULIN ANIMAL (INSUL [Suspect]
     Indication: DIABETES MELLITUS
  2. HUMULIN 70/30 [Suspect]
     Indication: DIABETES MELLITUS NON-INSULIN-DEPENDENT
     Dosage: 30 U DAY
  3. LIPITOR [Concomitant]
  4. OSCAL (CALCIUM CARBONATE) [Concomitant]
  5. NORVASC [Concomitant]
  6. ULTRAM [Concomitant]

REACTIONS (22)
  - ANXIETY [None]
  - ARTHRITIS [None]
  - BENIGN UTERINE NEOPLASM [None]
  - BLOOD GLUCOSE INCREASED [None]
  - BURNING SENSATION [None]
  - CARPAL TUNNEL SYNDROME [None]
  - CONTUSION [None]
  - FALL [None]
  - FEELING ABNORMAL [None]
  - HEAD INJURY [None]
  - HYPOAESTHESIA [None]
  - INCREASED UPPER AIRWAY SECRETION [None]
  - LIMB INJURY [None]
  - MIDDLE EAR EFFUSION [None]
  - MUSCULOSKELETAL STIFFNESS [None]
  - OSTEOPOROSIS [None]
  - PAIN IN EXTREMITY [None]
  - PARAESTHESIA [None]
  - PERIPHERAL VASCULAR DISORDER [None]
  - RHINORRHOEA [None]
  - SINUS CONGESTION [None]
  - WEIGHT INCREASED [None]
